FAERS Safety Report 5325965-5 (Version None)
Quarter: 2007Q2

REPORT INFORMATION
  Report Type: 
  Country: None (occurrence: None)
  Receive Date: 20070510
  Receipt Date: 20070427
  Transmission Date: 20071010
  Serious: Yes (Death)
  Sender: FDA-Public Use
  Company Number: 2007S1000197

PATIENT
  Sex: 0

DRUGS (2)
  1. CUBICIN [Suspect]
     Indication: ENTEROCOCCAL BACTERAEMIA
  2. LINEZOLID [Concomitant]

REACTIONS (2)
  - ENTEROCOCCAL BACTERAEMIA [None]
  - PULMONARY ALVEOLAR HAEMORRHAGE [None]
